FAERS Safety Report 13098401 (Version 1)
Quarter: 2017Q1

REPORT INFORMATION
  Report Type: Spontaneous
  Country: US (occurrence: US)
  Receive Date: 20170109
  Receipt Date: 20170109
  Transmission Date: 20170428
  Serious: No
  Sender: FDA-Public Use
  Company Number: US-FRESENIUS KABI-FK201700231

PATIENT
  Sex: Male

DRUGS (4)
  1. GENTAMICIN. [Suspect]
     Active Substance: GENTAMICIN
     Indication: SINUSITIS
     Route: 045
     Dates: start: 201612, end: 20170101
  2. NORMAL SALINE [Concomitant]
     Active Substance: SODIUM CHLORIDE
     Indication: SINUSITIS
     Route: 045
     Dates: start: 201612, end: 20170101
  3. NASAL SOLUTION [Concomitant]
     Indication: SINUSITIS
     Route: 045
     Dates: start: 2016
  4. PROBIOTIC [Concomitant]
     Active Substance: PROBIOTICS NOS
     Indication: SINUSITIS
     Route: 048
     Dates: start: 2016

REACTIONS (6)
  - Cardiovascular disorder [Recovering/Resolving]
  - Blood pressure increased [Recovering/Resolving]
  - Feeling cold [Recovering/Resolving]
  - Peripheral coldness [Recovering/Resolving]
  - Product use issue [Recovering/Resolving]
  - Chest discomfort [Recovering/Resolving]

NARRATIVE: CASE EVENT DATE: 201612
